FAERS Safety Report 22930025 (Version 2)
Quarter: 2023Q4

REPORT INFORMATION
  Report Type: Spontaneous
  Country: US (occurrence: US)
  Receive Date: 20230911
  Receipt Date: 20231016
  Transmission Date: 20240109
  Serious: No
  Sender: FDA-Public Use
  Company Number: US-PFIZER INC-202200526212

PATIENT
  Age: 89 Year
  Sex: Male
  Weight: 78.005 kg

DRUGS (6)
  1. VYNDAMAX [Suspect]
     Active Substance: TAFAMIDIS
     Indication: Cardiac amyloidosis
     Dosage: 61 MG, DAILY
  2. VYNDAMAX [Suspect]
     Active Substance: TAFAMIDIS
     Dosage: 61 MG, 1X/DAY
     Dates: start: 20210706
  3. GLEEVEC [Concomitant]
     Active Substance: IMATINIB MESYLATE
     Dosage: 400 MG, DAILY
     Dates: start: 20050801
  4. JANUVIA [Concomitant]
     Active Substance: SITAGLIPTIN PHOSPHATE
     Dosage: 50 MG, DAILY
  5. PRANDIN [Concomitant]
     Active Substance: REPAGLINIDE
     Dosage: 2MG, 3X/DAY
  6. AVODART [Concomitant]
     Active Substance: DUTASTERIDE
     Dosage: UNK (.5 MG, 3X WEEK)

REACTIONS (1)
  - Hypoacusis [Recovered/Resolved]
